FAERS Safety Report 12811235 (Version 1)
Quarter: 2016Q4

REPORT INFORMATION
  Report Type: Spontaneous
  Country: US (occurrence: US)
  Receive Date: 20161005
  Receipt Date: 20161005
  Transmission Date: 20170207
  Serious: No
  Sender: FDA-Public Use
  Company Number: US-BAYER-2016-192778

PATIENT
  Age: 11 Year
  Sex: Female
  Weight: 28.57 kg

DRUGS (2)
  1. CLARITIN REDITABS [Suspect]
     Active Substance: LORATADINE
     Indication: NASAL CONGESTION
     Dosage: 2 DF, QD
     Route: 048
     Dates: start: 20161003, end: 20161003
  2. CLARITIN REDITABS [Suspect]
     Active Substance: LORATADINE
     Indication: THROAT IRRITATION

REACTIONS (2)
  - Extra dose administered [Recovered/Resolved]
  - Expired product administered [Unknown]

NARRATIVE: CASE EVENT DATE: 20161003
